FAERS Safety Report 20511617 (Version 1)
Quarter: 2022Q1

REPORT INFORMATION
  Report Type: Spontaneous
  Country: US (occurrence: None)
  Receive Date: 20220223
  Receipt Date: 20220223
  Transmission Date: 20220423
  Serious: Yes (Hospitalization, Disabling)
  Sender: FDA-Public Use
  Company Number: None

PATIENT
  Age: 75 Year
  Sex: Male

DRUGS (1)
  1. EVUSHELD [Suspect]
     Active Substance: CILGAVIMAB\TIXAGEVIMAB
     Indication: Plasma cell myeloma
     Route: 030
     Dates: start: 20220218, end: 20220218

REACTIONS (8)
  - Headache [None]
  - Malaise [None]
  - Fall [None]
  - Unresponsive to stimuli [None]
  - Lethargy [None]
  - Confusional state [None]
  - Dysarthria [None]
  - Asthenia [None]

NARRATIVE: CASE EVENT DATE: 20220219
